FAERS Safety Report 25135931 (Version 1)
Quarter: 2025Q1

REPORT INFORMATION
  Report Type: Other
  Country: CN (occurrence: CN)
  Receive Date: 20250328
  Receipt Date: 20250328
  Transmission Date: 20250409
  Serious: Yes (Other)
  Sender: PARATEK PHARMACEUTICALS
  Company Number: CN-PARATEK PHARMACEUTICALS, INC.-2025PTK00372

PATIENT
  Age: 87 Year
  Sex: Female
  Weight: 65.6 kg

DRUGS (1)
  1. NUZYRA [Suspect]
     Active Substance: OMADACYCLINE
     Indication: Lower respiratory tract infection
     Dosage: 0.1 G, QD
     Route: 041
     Dates: start: 20250309, end: 20250314

REACTIONS (2)
  - Purpura [Recovering/Resolving]
  - Dermatitis allergic [Recovering/Resolving]

NARRATIVE: CASE EVENT DATE: 20250310
